FAERS Safety Report 10629061 (Version 2)
Quarter: 2016Q4

REPORT INFORMATION
  Report Type: Spontaneous
  Country: US (occurrence: US)
  Receive Date: 20141205
  Receipt Date: 20161201
  Transmission Date: 20170206
  Serious: No
  Sender: FDA-Public Use
  Company Number: US-BRISTOL-MYERS SQUIBB COMPANY-21601083

PATIENT
  Sex: Female

DRUGS (2)
  1. SUSTIVA [Suspect]
     Active Substance: EFAVIRENZ
     Indication: HIV TEST
     Dosage: 600 MG, UNK
     Route: 048
  2. ABACAVIR SULFATE+ZIDOVUDINE+LAMIVUDINE [Suspect]
     Active Substance: ABACAVIR SULFATE\LAMIVUDINE\ZIDOVUDINE
     Indication: PRODUCT USED FOR UNKNOWN INDICATION
     Route: 065

REACTIONS (2)
  - Scratch [Unknown]
  - Erythema [Unknown]

NARRATIVE: CASE EVENT DATE: 2014
